FAERS Safety Report 12411973 (Version 3)
Quarter: 2016Q2

REPORT INFORMATION
  Report Type: Spontaneous
  Country: US (occurrence: US)
  Receive Date: 20160527
  Receipt Date: 20160616
  Transmission Date: 20160815
  Serious: Yes (Other)
  Sender: FDA-Public Use
  Company Number: US-BAYER-2016-102636

PATIENT
  Age: 36 Year
  Sex: Female

DRUGS (1)
  1. MIRENA [Suspect]
     Active Substance: LEVONORGESTREL
     Indication: CONTRACEPTION
     Dosage: 20 MCG/24HR, CONT
     Route: 015
     Dates: start: 2011, end: 20160422

REACTIONS (15)
  - Abdominal pain [Recovering/Resolving]
  - Nausea [None]
  - Hypomenorrhoea [None]
  - Device difficult to use [None]
  - Chills [Recovered/Resolved]
  - Asthenia [None]
  - Haematuria [None]
  - Abdominal pain [Recovered/Resolved]
  - Procedural pain [None]
  - Vomiting [Recovered/Resolved]
  - Hyperhidrosis [Recovered/Resolved]
  - Retching [None]
  - Embedded device [Recovering/Resolving]
  - Vaginal haemorrhage [None]
  - Abdominal pain [None]

NARRATIVE: CASE EVENT DATE: 20150421
